FAERS Safety Report 12497015 (Version 2)
Quarter: 2016Q3

REPORT INFORMATION
  Report Type: Report from Study
  Country: US (occurrence: US)
  Receive Date: 20160624
  Receipt Date: 20160727
  Transmission Date: 20161109
  Serious: Yes (Hospitalization)
  Sender: FDA-Public Use
  Company Number: US-MALLINCKRODT-T201602637

PATIENT
  Age: 5 Month
  Sex: Male
  Weight: 6 kg

DRUGS (3)
  1. REPOSITORY CORTICOTROPIN INJECTION [Suspect]
     Active Substance: CORTICOTROPIN
     Indication: INFANTILE SPASMS
     Dosage: UNKNOWN DOSE/FREQUENCY
     Route: 030
     Dates: start: 201606, end: 201606
  2. REPOSITORY CORTICOTROPIN INJECTION [Suspect]
     Active Substance: CORTICOTROPIN
     Dosage: WEANING (TAPERING SCHEDULE NOT PROVIDED)
     Route: 030
     Dates: start: 201606
  3. REPOSITORY CORTICOTROPIN INJECTION [Suspect]
     Active Substance: CORTICOTROPIN
     Dosage: 20 UNITS (0.25 ML) TWICE DAILY
     Route: 030
     Dates: start: 201606, end: 201606

REACTIONS (1)
  - Infantile spasms [Recovering/Resolving]

NARRATIVE: CASE EVENT DATE: 20160616
